FAERS Safety Report 7817844-6 (Version None)
Quarter: 2011Q4

REPORT INFORMATION
  Report Type: 
  Country: None (occurrence: None)
  Receive Date: 20111017
  Receipt Date: 20111010
  Transmission Date: 20120403
  Serious: Yes (Hospitalization)
  Sender: FDA-Public Use
  Company Number: GB-PFIZER INC-2011100724

PATIENT
  Age: 73 Year
  Sex: Male

DRUGS (4)
  1. MEROPENEM [Concomitant]
     Indication: SEPSIS
     Dosage: UNK
     Route: 042
     Dates: start: 20091128, end: 20091212
  2. ANIDULAFUNGIN [Suspect]
     Indication: LIVER DISORDER
     Dosage: 100 MG, 1X/DAY
     Dates: start: 20091111, end: 20091130
  3. VANCOMYCIN [Concomitant]
     Indication: SEPSIS
     Dosage: UNK
     Route: 042
     Dates: start: 20091129, end: 20091210
  4. PIPERACILLIN AND TAZOBACTAM [Concomitant]
     Indication: SEPSIS
     Dosage: UNK
     Route: 042
     Dates: start: 20091110, end: 20091127

REACTIONS (1)
  - SYSTEMIC CANDIDA [None]
